FAERS Safety Report 9608910 (Version 1)
Quarter: 2013Q4

REPORT INFORMATION
  Report Type: Spontaneous
  Country: US (occurrence: US)
  Receive Date: 20131009
  Receipt Date: 20131009
  Transmission Date: 20140711
  Serious: Yes (Other)
  Sender: FDA-Public Use
  Company Number: US-TEVA-436103USA

PATIENT
  Age: 36 Year
  Sex: Female

DRUGS (2)
  1. PARAGARD 380A [Suspect]
     Indication: CONTRACEPTION
     Route: 015
     Dates: start: 20130611, end: 20131002
  2. SODIUM CHLORIDE [Concomitant]

REACTIONS (4)
  - Haemorrhage [Recovered/Resolved]
  - Embedded device [Recovered/Resolved]
  - Dyspareunia [Recovered/Resolved]
  - Abdominal pain lower [Recovered/Resolved]
